FAERS Safety Report 7687814-X (Version None)
Quarter: 2011Q3

REPORT INFORMATION
  Report Type: 
  Country: None (occurrence: None)
  Receive Date: 20110817
  Receipt Date: 20110805
  Transmission Date: 20111222
  Serious: No
  Sender: FDA-Public Use
  Company Number: CA-JNJFOC-20110608314

PATIENT
  Sex: Female
  Weight: 41 kg

DRUGS (4)
  1. PREDNISONE [Concomitant]
  2. REMICADE [Suspect]
     Indication: CROHN'S DISEASE
     Route: 042
     Dates: start: 20110601
  3. REMICADE [Suspect]
     Route: 042
     Dates: start: 20110616
  4. FOLIC ACID [Concomitant]

REACTIONS (1)
  - MATERNAL EXPOSURE DURING PREGNANCY [None]
